FAERS Safety Report 9798574 (Version 1)
Quarter: 2013Q4

REPORT INFORMATION
  Report Type: Spontaneous
  Country: JP (occurrence: None)
  Receive Date: 20131230
  Receipt Date: 20131230
  Transmission Date: 20140711
  Serious: Yes (Hospitalization)
  Sender: FDA-Public Use
  Company Number: SYM-2013-14298

PATIENT
  Sex: Male

DRUGS (1)
  1. HERBESSER [Suspect]
     Indication: PRODUCT USED FOR UNKNOWN INDICATION
     Route: 048
     Dates: start: 20131128, end: 20131128

REACTIONS (2)
  - Bradycardia [None]
  - Accidental overdose [None]
